FAERS Safety Report 24813114 (Version 1)
Quarter: 2025Q1

REPORT INFORMATION
  Report Type: Spontaneous
  Country: FR (occurrence: FR)
  Receive Date: 20250107
  Receipt Date: 20250107
  Transmission Date: 20250409
  Serious: Yes (Hospitalization, Other)
  Sender: AUROBINDO
  Company Number: FR-AFSSAPS-NC2024001654

PATIENT
  Age: 81 Year
  Sex: Male
  Weight: 85 kg

DRUGS (4)
  1. MEROPENEM [Suspect]
     Active Substance: MEROPENEM
     Indication: Urinary tract infection
     Dosage: 2000 MILLIGRAM, ONCE A DAY
     Route: 042
     Dates: start: 20241102, end: 20241103
  2. MEROPENEM [Suspect]
     Active Substance: MEROPENEM
     Dosage: 1000 MILLIGRAM, ONCE A DAY
     Route: 042
     Dates: start: 20241104, end: 20241105
  3. MEROPENEM [Suspect]
     Active Substance: MEROPENEM
     Dosage: 500 MILLIGRAM, ONCE A DAY
     Route: 042
     Dates: start: 20241106, end: 20241113
  4. MEROPENEM [Suspect]
     Active Substance: MEROPENEM
     Dosage: 1000 MILLIGRAM, ONCE A DAY
     Route: 042
     Dates: start: 20241114, end: 20241115

REACTIONS (1)
  - Encephalopathy [Recovering/Resolving]

NARRATIVE: CASE EVENT DATE: 20241104
